FAERS Safety Report 9401431 (Version 1)
Quarter: 2013Q3

REPORT INFORMATION
  Report Type: Report from Study
  Country: US (occurrence: US)
  Receive Date: 20130715
  Receipt Date: 20130715
  Transmission Date: 20140515
  Serious: Yes (Hospitalization)
  Sender: FDA-Public Use
  Company Number: US-ROCHE-1243494

PATIENT
  Age: 27 Year
  Sex: Female

DRUGS (2)
  1. RITUXIMAB [Suspect]
     Indication: RHEUMATOID ARTHRITIS
     Route: 065
     Dates: start: 201302
  2. NAPROXEN [Suspect]
     Indication: RHEUMATOID ARTHRITIS
     Route: 065

REACTIONS (5)
  - Hip arthroplasty [Unknown]
  - Joint range of motion decreased [Unknown]
  - Local swelling [Unknown]
  - Arthralgia [Unknown]
  - Joint swelling [Unknown]
